FAERS Safety Report 9633799 (Version 1)
Quarter: 2013Q4

REPORT INFORMATION
  Report Type: Spontaneous
  Country: US (occurrence: None)
  Receive Date: 20131017
  Receipt Date: 20131017
  Transmission Date: 20140711
  Serious: Yes (Death)
  Sender: FDA-Public Use
  Company Number: 2013AP008644

PATIENT
  Age: 66 Year
  Sex: 0

DRUGS (11)
  1. LITHIUM CARBONATE CAPSULES [Suspect]
     Route: 048
  2. OXYCODONE [Suspect]
     Route: 048
  3. ESCITALOPRAM OXALATE [Suspect]
     Route: 048
  4. METHYLPHENIDATE [Suspect]
     Route: 048
  5. ARIPIPRAZOLE [Suspect]
     Route: 048
  6. SIMVASTATIN [Suspect]
     Route: 048
  7. VALACICLOVIR [Suspect]
     Route: 048
  8. PROPOXYPHENE [Suspect]
     Route: 048
  9. HYDROCODONE [Suspect]
     Route: 048
  10. TRIAZOLAM [Suspect]
     Route: 048
  11. ACETAMINOPHEN [Suspect]
     Route: 048

REACTIONS (2)
  - Cardio-respiratory arrest [None]
  - Completed suicide [None]
